FAERS Safety Report 9766057 (Version 1)
Quarter: 2013Q4

REPORT INFORMATION
  Report Type: Spontaneous
  Country: US (occurrence: US)
  Receive Date: 20131217
  Receipt Date: 20131217
  Transmission Date: 20140711
  Serious: No
  Sender: FDA-Public Use
  Company Number: US-GLAXOSMITHKLINE-A1017092A

PATIENT
  Age: 49 Year
  Sex: Female

DRUGS (1)
  1. VOTRIENT [Suspect]
     Indication: KAPOSI^S SARCOMA
     Dosage: 200MG UNKNOWN
     Route: 065

REACTIONS (1)
  - Drug ineffective [Unknown]
